FAERS Safety Report 6973718-4 (Version None)
Quarter: 2010Q3

REPORT INFORMATION
  Report Type: 
  Country: None (occurrence: None)
  Receive Date: 20100909
  Receipt Date: 20100830
  Transmission Date: 20110219
  Serious: Yes (Other)
  Sender: FDA-Public Use
  Company Number: CA-PFIZER INC-2010109036

PATIENT
  Age: 16 Year
  Sex: Male

DRUGS (3)
  1. SOMATROPIN [Suspect]
     Indication: BODY HEIGHT BELOW NORMAL
     Dosage: 0.24 MG/KG, WEEKLY
  2. SPIRONOLACTONE [Concomitant]
     Dosage: 3-4MG/KG/DAY DIVIDED INTO 4 DOSES
  3. SPIRONOLACTONE W/ HYDROCHLOROTHIAZIDE [Concomitant]
     Dosage: 1-3MG/KG/DAY DIVIDED INTO 2 DOSES

REACTIONS (1)
  - PROTEIN-LOSING GASTROENTEROPATHY [None]
